FAERS Safety Report 25899012 (Version 5)
Quarter: 2025Q4

REPORT INFORMATION
  Report Type: Spontaneous
  Country: BR (occurrence: BR)
  Receive Date: 20251009
  Receipt Date: 20251222
  Transmission Date: 20260118
  Serious: Yes (Hospitalization, Other)
  Sender: ROCHE
  Company Number: BR-002147023-NVSC2025BR154804

PATIENT
  Age: 11 Year
  Sex: Female

DRUGS (2)
  1. XOLAIR [Suspect]
     Active Substance: OMALIZUMAB
     Indication: Product used for unknown indication
     Dosage: UNK
  2. EPINEPHRINE [Concomitant]
     Active Substance: EPINEPHRINE
     Indication: Product used for unknown indication

REACTIONS (4)
  - Anaphylactic shock [Recovered/Resolved]
  - Skin lesion [Unknown]
  - Throat tightness [Unknown]
  - Superficial inflammatory dermatosis [Unknown]

NARRATIVE: CASE EVENT DATE: 20250904
